FAERS Safety Report 6485629-1 (Version None)
Quarter: 2009Q4

REPORT INFORMATION
  Report Type: 
  Country: None (occurrence: None)
  Receive Date: 20091209
  Receipt Date: 20090701
  Transmission Date: 20100525
  Serious: No
  Sender: FDA-Public Use
  Company Number: US-AMGEN-KDL354103

PATIENT
  Sex: Female

DRUGS (3)
  1. ENBREL [Suspect]
     Indication: POLYARTHRITIS
     Route: 058
     Dates: start: 20061101
  2. METHOTREXATE [Concomitant]
     Route: 030
  3. LEFLUNOMIDE [Concomitant]
     Route: 048

REACTIONS (7)
  - ARTHRALGIA [None]
  - C-REACTIVE PROTEIN INCREASED [None]
  - JOINT RANGE OF MOTION DECREASED [None]
  - JOINT STIFFNESS [None]
  - JOINT SWELLING [None]
  - MUSCULOSKELETAL STIFFNESS [None]
  - PAIN IN EXTREMITY [None]
